FAERS Safety Report 7054725-2 (Version None)
Quarter: 2010Q4

REPORT INFORMATION
  Report Type: 
  Country: None (occurrence: None)
  Receive Date: 20101015
  Receipt Date: 20101004
  Transmission Date: 20110411
  Serious: Yes (Death)
  Sender: FDA-Public Use
  Company Number: 1000016605

PATIENT
  Age: 47 Year
  Sex: Male
  Weight: 95.5 kg

DRUGS (1)
  1. SAVELLA [Suspect]
     Indication: FIBROMYALGIA
     Dosage: ORAL
     Route: 048
     Dates: start: 20090901, end: 20100325

REACTIONS (4)
  - COMPLETED SUICIDE [None]
  - GUN SHOT WOUND [None]
  - PARANOIA [None]
  - SUSPICIOUSNESS [None]
